FAERS Safety Report 10230057 (Version 1)
Quarter: 2014Q2

REPORT INFORMATION
  Report Type: Report from Study
  Country: TN (occurrence: TN)
  Receive Date: 20140611
  Receipt Date: 20140611
  Transmission Date: 20141212
  Serious: Yes (Death)
  Sender: FDA-Public Use
  Company Number: TN-SA-2014SA076261

PATIENT
  Age: 63 Year
  Sex: Male

DRUGS (5)
  1. PLAVIX [Suspect]
     Indication: CORONARY ARTERIAL STENT INSERTION
     Dosage: DOSE: 75
     Route: 048
     Dates: start: 20120101, end: 20140406
  2. ASPIRIN [Concomitant]
     Route: 048
     Dates: end: 20140406
  3. GLIBENCLAMIDE [Concomitant]
     Route: 048
     Dates: end: 20140406
  4. ATORVASTATIN [Concomitant]
     Route: 048
     Dates: end: 20140406
  5. LANTUS [Concomitant]
     Route: 058
     Dates: end: 20140406

REACTIONS (2)
  - Cardiac arrest [Fatal]
  - Decreased appetite [Unknown]
